FAERS Safety Report 23233107 (Version 3)
Quarter: 2024Q1

REPORT INFORMATION
  Report Type: Report from Study
  Country: GB (occurrence: GB)
  Receive Date: 20231128
  Receipt Date: 20240205
  Transmission Date: 20240410
  Serious: Yes (Other)
  Sender: FDA-Public Use
  Company Number: GB-SANDOZ-SDZ2023GB059358

PATIENT
  Age: 60 Year
  Sex: Male

DRUGS (1)
  1. ERELZI [Suspect]
     Active Substance: ETANERCEPT-SZZS
     Indication: Rheumatoid arthritis
     Dosage: 50 MG, QW
     Route: 058
     Dates: start: 20231107

REACTIONS (3)
  - Rheumatoid arthritis [Recovering/Resolving]
  - Lower respiratory tract infection [Unknown]
  - Tooth infection [Unknown]

NARRATIVE: CASE EVENT DATE: 20231201
